FAERS Safety Report 25976575 (Version 2)
Quarter: 2025Q4

REPORT INFORMATION
  Report Type: Report from Study
  Country: US (occurrence: None)
  Receive Date: 20251029
  Receipt Date: 20251105
  Transmission Date: 20260118
  Serious: Yes (Hospitalization)
  Sender: UCB
  Company Number: US-UCBSA-2025064393

PATIENT
  Age: 34 Year

DRUGS (1)
  1. BIMEKIZUMAB [Suspect]
     Active Substance: BIMEKIZUMAB
     Indication: Hidradenitis
     Dosage: 320 MILLIGRAM, EV 2 WEEKS(QOW)

REACTIONS (6)
  - Abdominal pain upper [Recovered/Resolved]
  - Vomiting [Unknown]
  - Injection site pain [Recovered/Resolved]
  - Musculoskeletal chest pain [Unknown]
  - Hyperhidrosis [Unknown]
  - Fear of injection [Unknown]
